FAERS Safety Report 24784607 (Version 1)
Quarter: 2024Q4

REPORT INFORMATION
  Report Type: Spontaneous
  Country: FR (occurrence: FR)
  Receive Date: 20241227
  Receipt Date: 20241227
  Transmission Date: 20250115
  Serious: Yes (Hospitalization)
  Sender: VERITY PHARMACEUTICALS INC.
  Company Number: FR-VER-202400028

PATIENT
  Age: 20 Year
  Sex: Female

DRUGS (2)
  1. TRIPTORELIN PAMOATE [Suspect]
     Active Substance: TRIPTORELIN PAMOATE
     Indication: Superovulation
     Route: 058
     Dates: start: 20230122, end: 20230122
  2. CHORIOGONADOTROPIN ALFA [Suspect]
     Active Substance: CHORIOGONADOTROPIN ALFA
     Indication: Superovulation
     Dosage: POWDER FOR SOLUTION FOR INJECTION
     Route: 058
     Dates: start: 20230122, end: 20230122

REACTIONS (2)
  - Product use in unapproved indication [Unknown]
  - Ovarian hyperstimulation syndrome [Recovering/Resolving]

NARRATIVE: CASE EVENT DATE: 20230122
